FAERS Safety Report 7630414-8 (Version None)
Quarter: 2011Q3

REPORT INFORMATION
  Report Type: 
  Country: None (occurrence: None)
  Receive Date: 20110722
  Receipt Date: 20110713
  Transmission Date: 20111222
  Serious: Yes (Hospitalization)
  Sender: FDA-Public Use
  Company Number: FR-GLAXOSMITHKLINE-B0431524A

PATIENT
  Age: 91 Year
  Sex: Female

DRUGS (9)
  1. SERMION [Concomitant]
     Route: 065
  2. NICARDIPINE HCL [Concomitant]
     Route: 048
     Dates: end: 20031020
  3. BISOPROLOL FUMARATE [Concomitant]
     Dosage: 5MG PER DAY
     Route: 048
  4. ALTIZIDE [Concomitant]
     Route: 048
  5. OXAZEPAM [Concomitant]
     Route: 065
  6. SPIRONOLACTONE [Concomitant]
     Dosage: 2UNIT PER DAY
     Route: 048
     Dates: end: 20031020
  7. PAROXETINE HCL [Suspect]
     Route: 048
     Dates: start: 20031009, end: 20031020
  8. RISPERDAL [Suspect]
     Dosage: .5MG PER DAY
     Route: 048
  9. DIFRAREL [Concomitant]
     Route: 065

REACTIONS (3)
  - INAPPROPRIATE ANTIDIURETIC HORMONE SECRETION [None]
  - FALL [None]
  - ABNORMAL BEHAVIOUR [None]
